FAERS Safety Report 20169195 (Version 1)
Quarter: 2021Q4

REPORT INFORMATION
  Report Type: Spontaneous
  Country: US (occurrence: US)
  Receive Date: 20211210
  Receipt Date: 20211210
  Transmission Date: 20220303
  Serious: No
  Sender: FDA-Public Use
  Company Number: US-BAYER-2021A260179

PATIENT
  Sex: Female

DRUGS (1)
  1. MIRENA [Suspect]
     Active Substance: LEVONORGESTREL
     Dosage: 20?G/DAY
     Route: 015
     Dates: start: 20210921, end: 20210921

REACTIONS (4)
  - Device expulsion [Recovered/Resolved]
  - Device use issue [None]
  - Device difficult to use [None]
  - Uterine cervix stenosis [None]

NARRATIVE: CASE EVENT DATE: 20210921
